FAERS Safety Report 7668759-8 (Version None)
Quarter: 2011Q3

REPORT INFORMATION
  Report Type: 
  Country: None (occurrence: None)
  Receive Date: 20110808
  Receipt Date: 20110801
  Transmission Date: 20111222
  Serious: Yes (Other)
  Sender: FDA-Public Use
  Company Number: US-PFIZER INC-2011174853

PATIENT
  Sex: Female

DRUGS (5)
  1. ATROPINE SULFATE [Suspect]
  2. OXALIPLATIN [Suspect]
  3. FLUOROURACIL [Suspect]
  4. CAMPTOSAR [Suspect]
     Dosage: 180 MG/M2, UNK
  5. LEUCOVORIN CALCIUM [Suspect]

REACTIONS (2)
  - DYSARTHRIA [None]
  - APHASIA [None]
